FAERS Safety Report 4319350-2 (Version None)
Quarter: 2004Q1

REPORT INFORMATION
  Report Type: 
  Country: None (occurrence: None)
  Receive Date: 20040316
  Receipt Date: 20040301
  Transmission Date: 20041129
  Serious: No
  Sender: FDA-Public Use
  Company Number: 2004CG00498

PATIENT
  Age: 75 Year
  Sex: Male

DRUGS (1)
  1. CASODEX [Suspect]
     Indication: PROSTATE CANCER
     Dosage: 50 MG DAILY PO
     Route: 048
     Dates: start: 20030701

REACTIONS (2)
  - DEMENTIA ALZHEIMER'S TYPE [None]
  - MENTAL IMPAIRMENT [None]
